FAERS Safety Report 17236198 (Version 1)
Quarter: 2020Q1

REPORT INFORMATION
  Report Type: Report from Study
  Country: US (occurrence: US)
  Receive Date: 20200106
  Receipt Date: 20200106
  Transmission Date: 20200409
  Serious: No
  Sender: FDA-Public Use
  Company Number: NVSC2019US085276

PATIENT
  Sex: Male

DRUGS (3)
  1. CLOBETASOL [Concomitant]
     Active Substance: CLOBETASOL
     Indication: PRODUCT USED FOR UNKNOWN INDICATION
     Dosage: UNK
     Route: 065
  2. COSENTYX [Suspect]
     Active Substance: SECUKINUMAB
     Indication: PSORIASIS
     Dosage: 300MG (WEEKS 0, 1, 2, 3, AND 4 THEN ONCE EVERY 4 WEEKS THEREAFTER)
     Route: 058
     Dates: start: 20191226
  3. COSENTYX [Suspect]
     Active Substance: SECUKINUMAB
     Indication: PALMOPLANTAR PUSTULOSIS

REACTIONS (1)
  - Drug ineffective [Unknown]
